FAERS Safety Report 9516232 (Version 1)
Quarter: 2013Q3

REPORT INFORMATION
  Report Type: Spontaneous
  Country: FR (occurrence: None)
  Receive Date: 20130909
  Receipt Date: 20130909
  Transmission Date: 20140515
  Serious: Yes (Hospitalization)
  Sender: FDA-Public Use
  Company Number: SYM-2013-10413

PATIENT
  Age: 39 Year
  Sex: Female

DRUGS (3)
  1. FLAGYL [Suspect]
     Indication: DIARRHOEA
     Dosage: 500 MG, 5 IN 1 D, ORAL
     Route: 048
     Dates: start: 20130408, end: 20130415
  2. RIVOTRIL (CLONAZEPAM) (CLONAZEPAM) [Concomitant]
  3. ULTRA - LEVURE (SACCHAROMYCES BOULARD I I) (SACCHARPMYCES BOULARDI I ) [Concomitant]

REACTIONS (1)
  - Peripheral sensory neuropathy [None]
